FAERS Safety Report 15917802 (Version 1)
Quarter: 2019Q1

REPORT INFORMATION
  Report Type: Spontaneous
  Country: US (occurrence: US)
  Receive Date: 20190205
  Receipt Date: 20190205
  Transmission Date: 20190417
  Serious: No
  Sender: FDA-Public Use
  Company Number: US-PFIZER INC-2019051825

PATIENT
  Age: 10 Year
  Sex: Female

DRUGS (1)
  1. GENOTROPIN MQ [Suspect]
     Active Substance: SOMATROPIN
     Indication: DIGEORGE^S SYNDROME
     Dosage: 1.4 MG, DAILY
     Dates: start: 20170403

REACTIONS (2)
  - Product use in unapproved indication [Unknown]
  - Tri-iodothyronine decreased [Unknown]

NARRATIVE: CASE EVENT DATE: 20170403
